FAERS Safety Report 8198078-5 (Version None)
Quarter: 2012Q1

REPORT INFORMATION
  Report Type: 
  Country: None (occurrence: None)
  Receive Date: 20120227
  Receipt Date: 20111108
  Transmission Date: 20120608
  Serious: No
  Sender: FDA-Public Use
  Company Number: 335479

PATIENT
  Sex: Female

DRUGS (5)
  1. VICTOZA [Suspect]
     Indication: TYPE 2 DIABETES MELLITUS
     Dosage: 1.2 MG, QD, SUBCUTANEOUS
     Route: 058
     Dates: start: 20101105
  2. MELOXICAM [Concomitant]
  3. METFORMIN HCL [Concomitant]
  4. PANTOPRAZOLE [Concomitant]
  5. LISINOPRIL [Concomitant]

REACTIONS (2)
  - HYPOGLYCAEMIA [None]
  - URINARY TRACT INFECTION [None]
